FAERS Safety Report 10371299 (Version 1)
Quarter: 2014Q3

REPORT INFORMATION
  Report Type: Spontaneous
  Country: BR (occurrence: None)
  Receive Date: 20140806
  Receipt Date: 20140806
  Transmission Date: 20150326
  Serious: Yes (Other)
  Sender: FDA-Public Use
  Company Number: A1083775A

PATIENT
  Sex: Female

DRUGS (1)
  1. CITRIC ACID + SODIUM BICARBONATE + SODIUM CARBONATE TABLET (CITRIC AC+SOD BCB+SOD CAR) [Suspect]
     Active Substance: CITRIC ACID MONOHYDRATE\SODIUM BICARBONATE\SODIUM CARBONATE

REACTIONS (1)
  - Drug dependence [None]
